FAERS Safety Report 4866233-5 (Version None)
Quarter: 2005Q4

REPORT INFORMATION
  Report Type: 
  Country: None (occurrence: None)
  Receive Date: 20051221
  Receipt Date: 20051215
  Transmission Date: 20060501
  Serious: Yes (Other)
  Sender: FDA-Public Use
  Company Number: S05-USA-04937-01

PATIENT
  Age: 9 Year
  Sex: Female

DRUGS (2)
  1. LEXAPRO [Suspect]
     Indication: ANXIETY
     Dosage: 5 MG QD PO
     Route: 048
  2. LEXAPRO [Suspect]
     Indication: ANXIETY
     Dates: end: 20050101

REACTIONS (4)
  - AGITATION [None]
  - HEART RATE INCREASED [None]
  - LOSS OF CONSCIOUSNESS [None]
  - TREMOR [None]
